FAERS Safety Report 4864455-0 (Version None)
Quarter: 2005Q4

REPORT INFORMATION
  Report Type: 
  Country: None (occurrence: None)
  Receive Date: 20051222
  Receipt Date: 20050222
  Transmission Date: 20060501
  Serious: Yes (Other)
  Sender: FDA-Public Use
  Company Number: GB-BRISTOL-MYERS SQUIBB COMPANY-12873287

PATIENT
  Age: 56 Year
  Sex: Male

DRUGS (2)
  1. MODECATE [Suspect]
     Dosage: DURATION OF THERAPY:  YEARS
  2. CHLORPROMAZINE [Concomitant]

REACTIONS (1)
  - HYPERTHYROIDISM [None]
